FAERS Safety Report 16362186 (Version 1)
Quarter: 2019Q2

REPORT INFORMATION
  Report Type: Spontaneous
  Country: IL (occurrence: IL)
  Receive Date: 20190528
  Receipt Date: 20190528
  Transmission Date: 20190711
  Serious: Yes (Other)
  Sender: FDA-Public Use
  Company Number: IND-IL-009507513-1905ISR011194

PATIENT
  Age: 60 Year
  Sex: Male

DRUGS (1)
  1. ARCOXIA [Suspect]
     Active Substance: ETORICOXIB
     Indication: GOUT
     Route: 048

REACTIONS (3)
  - Skin ulcer [Unknown]
  - Tongue ulceration [Unknown]
  - Ocular hyperaemia [Unknown]
